FAERS Safety Report 23675432 (Version 1)
Quarter: 2024Q1

REPORT INFORMATION
  Report Type: Other
  Country: AU (occurrence: AU)
  Receive Date: 20240327
  Receipt Date: 20240327
  Transmission Date: 20240409
  Serious: Yes (Other)
  Sender: FDA-Public Use
  Company Number: AU-ALEMBIC PHARMACUETICALS LIMITED-2024SCAL000276

PATIENT

DRUGS (1)
  1. DULOXETINE HYDROCHLORIDE [Suspect]
     Active Substance: DULOXETINE HYDROCHLORIDE
     Indication: Product used for unknown indication
     Dosage: UNK

REACTIONS (8)
  - Dystonia [Unknown]
  - Dyspnoea [Unknown]
  - Muscle spasms [Unknown]
  - Ocular discomfort [Unknown]
  - Chest discomfort [Unknown]
  - Musculoskeletal stiffness [Unknown]
  - Palpitations [Unknown]
  - Fatigue [Unknown]
